FAERS Safety Report 20540222 (Version 1)
Quarter: 2022Q1

REPORT INFORMATION
  Report Type: Spontaneous
  Country: PT (occurrence: PT)
  Receive Date: 20220302
  Receipt Date: 20220302
  Transmission Date: 20220423
  Serious: Yes (Hospitalization, Other)
  Sender: FDA-Public Use
  Company Number: PT-AUROBINDO-AUR-APL-2021-045725

PATIENT
  Age: 81 Year
  Sex: Female

DRUGS (2)
  1. HALDOL [Suspect]
     Active Substance: HALOPERIDOL
     Indication: Product used for unknown indication
     Dosage: UNK
     Route: 065
  2. QUETIAPINE FUMARATE [Suspect]
     Active Substance: QUETIAPINE FUMARATE
     Indication: Product used for unknown indication
     Route: 065

REACTIONS (10)
  - Neuroleptic malignant syndrome [Recovering/Resolving]
  - Rhabdomyolysis [Recovering/Resolving]
  - Disorientation [Recovering/Resolving]
  - Hyperlactacidaemia [Recovering/Resolving]
  - Slow speech [Recovering/Resolving]
  - Muscle strength abnormal [Recovering/Resolving]
  - Musculoskeletal stiffness [Recovering/Resolving]
  - Tremor [Recovering/Resolving]
  - Bradykinesia [Recovering/Resolving]
  - Hyperthermia [Recovering/Resolving]
